FAERS Safety Report 14709594 (Version 2)
Quarter: 2019Q3

REPORT INFORMATION
  Report Type: Report from Study
  Country: US (occurrence: US)
  Receive Date: 20180403
  Receipt Date: 20190805
  Transmission Date: 20191004
  Serious: No
  Sender: FDA-Public Use
  Company Number: PHEH2018US012730

PATIENT
  Age: 38 Year
  Sex: Female

DRUGS (3)
  1. TOPIRAMATE. [Concomitant]
     Active Substance: TOPIRAMATE
     Indication: PRODUCT USED FOR UNKNOWN INDICATION
     Dosage: UNK
     Route: 065
  2. LISINOPRIL. [Concomitant]
     Active Substance: LISINOPRIL
     Indication: PRODUCT USED FOR UNKNOWN INDICATION
     Dosage: UNK
     Route: 065
  3. GILENYA [Suspect]
     Active Substance: FINGOLIMOD HYDROCHLORIDE
     Indication: PRODUCT USED FOR UNKNOWN INDICATION
     Dosage: 0.5 MG, QD
     Route: 048
     Dates: start: 20180320

REACTIONS (7)
  - Temperature intolerance [Unknown]
  - Bronchitis [Recovered/Resolved]
  - Dry mouth [Unknown]
  - Ataxia [Unknown]
  - Dizziness [Unknown]
  - Sinusitis [Recovered/Resolved]
  - Balance disorder [Unknown]

NARRATIVE: CASE EVENT DATE: 20180320
